FAERS Safety Report 10554619 (Version 1)
Quarter: 2014Q4

REPORT INFORMATION
  Report Type: Spontaneous
  Country: US (occurrence: None)
  Receive Date: 20141029
  Receipt Date: 20141029
  Transmission Date: 20150529
  Serious: Yes (Disabling, Other)
  Sender: FDA-Public Use
  Company Number: None

PATIENT
  Age: 54 Year
  Sex: Female

DRUGS (2)
  1. CIPRO [Suspect]
     Active Substance: CIPROFLOXACIN HYDROCHLORIDE
     Indication: BRONCHITIS
     Dates: start: 20110420
  2. CIPRO [Suspect]
     Active Substance: CIPROFLOXACIN HYDROCHLORIDE
     Indication: EAR INFECTION
     Dates: start: 20110420

REACTIONS (7)
  - Impaired work ability [None]
  - Nerve injury [None]
  - Myalgia [None]
  - Multiple sclerosis [None]
  - Anaesthetic complication neurological [None]
  - Neuropathy peripheral [None]
  - Tendon rupture [None]

NARRATIVE: CASE EVENT DATE: 20110420
